FAERS Safety Report 4866354-7 (Version None)
Quarter: 2005Q4

REPORT INFORMATION
  Report Type: 
  Country: None (occurrence: None)
  Receive Date: 20051227
  Receipt Date: 20051220
  Transmission Date: 20060501
  Serious: Yes (Other)
  Sender: FDA-Public Use
  Company Number: US-AVENTIS-200520744US

PATIENT
  Sex: Male
  Weight: 104 kg

DRUGS (11)
  1. LANTUS [Suspect]
     Indication: DIABETES MELLITUS
     Dosage: DOSE UNIT: UNITS
  2. TOPROL-XL [Concomitant]
     Dates: start: 20040101
  3. GLUCOPHAGE [Concomitant]
  4. PREVACID [Concomitant]
     Dosage: DOSE: UNKNOWN
  5. MONOPRIL [Concomitant]
  6. NORVASC [Concomitant]
  7. LIPITOR [Concomitant]
  8. LILLY INSULIN [Concomitant]
     Dosage: FREQUENCY: BEFORE MEALS; DOSE UNIT: UNITS
  9. HYDROCHLOROTHIAZIDE [Concomitant]
  10. ASPIRIN [Concomitant]
  11. OXYGEN [Concomitant]
     Dosage: DOSE: UNK

REACTIONS (2)
  - HYPERTENSION [None]
  - RENAL ARTERY OCCLUSION [None]
